FAERS Safety Report 11134802 (Version 1)
Quarter: 2015Q2

REPORT INFORMATION
  Report Type: Spontaneous
  Country: US (occurrence: US)
  Receive Date: 20150525
  Receipt Date: 20150525
  Transmission Date: 20150821
  Serious: No
  Sender: FDA-Public Use
  Company Number: US-BIOGENIDEC-2015BI069167

PATIENT
  Age: 64 Year
  Sex: Female

DRUGS (1)
  1. TECFIDERA [Suspect]
     Active Substance: DIMETHYL FUMARATE
     Indication: MULTIPLE SCLEROSIS
     Route: 048
     Dates: start: 20141028, end: 20150512

REACTIONS (10)
  - Nasopharyngitis [Unknown]
  - Alopecia [Unknown]
  - Flatulence [Unknown]
  - Joint swelling [Unknown]
  - Weight increased [Unknown]
  - Flushing [Unknown]
  - Diarrhoea [Unknown]
  - Pollakiuria [Unknown]
  - Nightmare [Unknown]
  - Urinary tract infection [Recovered/Resolved]

NARRATIVE: CASE EVENT DATE: 20150512
